FAERS Safety Report 9809405 (Version 1)
Quarter: 2014Q1

REPORT INFORMATION
  Report Type: Spontaneous
  Country: US (occurrence: US)
  Receive Date: 20140110
  Receipt Date: 20140110
  Transmission Date: 20141002
  Serious: Yes (Death)
  Sender: FDA-Public Use
  Company Number: US-PFIZER INC-2014005366

PATIENT
  Age: 22 Year
  Sex: Male

DRUGS (5)
  1. SERTRALINE HCL [Suspect]
     Dosage: UNK
     Route: 048
  2. ACETAMINOPHEN W/OXYCODONE [Suspect]
     Dosage: UNK
     Route: 048
  3. METHADONE [Suspect]
     Dosage: UNK
     Route: 048
  4. HYDROCODONE W/ACETAMINOPHEN [Suspect]
     Dosage: UNK
     Route: 048
  5. DIAZEPAM [Suspect]
     Dosage: UNK
     Route: 048

REACTIONS (3)
  - Drug abuse [Fatal]
  - Cardiac arrest [Fatal]
  - Respiratory arrest [Fatal]
